FAERS Safety Report 25060286 (Version 1)
Quarter: 2025Q1

REPORT INFORMATION
  Report Type: Report from Study
  Country: US (occurrence: US)
  Receive Date: 20250310
  Receipt Date: 20250310
  Transmission Date: 20250409
  Serious: Yes (Hospitalization, Other)
  Sender: TAKEDA
  Company Number: US-TAKEDA-2024TUS101186

PATIENT
  Sex: Male

DRUGS (12)
  1. IXAZOMIB [Suspect]
     Active Substance: IXAZOMIB
     Indication: Plasma cell myeloma
  2. IXAZOMIB [Suspect]
     Active Substance: IXAZOMIB
  3. POMALYST [Suspect]
     Active Substance: POMALIDOMIDE
     Indication: Product used for unknown indication
  4. ASPIRIN [Concomitant]
     Active Substance: ASPIRIN
  5. DARZALEX [Concomitant]
     Active Substance: DARATUMUMAB
  6. ENALAPRIL [Concomitant]
     Active Substance: ENALAPRIL
  7. JARDIANCE [Concomitant]
     Active Substance: EMPAGLIFLOZIN
  8. KERENDIA [Concomitant]
     Active Substance: FINERENONE
  9. SIMVASTATIN [Concomitant]
     Active Substance: SIMVASTATIN
  10. TORSEMIDE [Concomitant]
     Active Substance: TORSEMIDE
  11. VALACYCLOVIR [Concomitant]
     Active Substance: VALACYCLOVIR HYDROCHLORIDE
  12. ACETAMINOPHEN\HYDROCODONE [Concomitant]
     Active Substance: ACETAMINOPHEN\HYDROCODONE

REACTIONS (7)
  - Plasma cell myeloma [Unknown]
  - Peripheral swelling [Recovering/Resolving]
  - Lethargy [Recovering/Resolving]
  - Fatigue [Unknown]
  - Gait inability [Unknown]
  - Limb discomfort [Unknown]
  - Chest wall mass [Unknown]
